FAERS Safety Report 8246218-1 (Version None)
Quarter: 2012Q1

REPORT INFORMATION
  Report Type: 
  Country: None (occurrence: None)
  Receive Date: 20120330
  Receipt Date: 20120322
  Transmission Date: 20120608
  Serious: Yes (Other)
  Sender: FDA-Public Use
  Company Number: US-BAYER-2011-044179

PATIENT
  Age: 35 Year
  Sex: Female
  Weight: 128 kg

DRUGS (26)
  1. YAZ [Suspect]
     Indication: CONTRACEPTION
     Dosage: UNK
     Route: 048
     Dates: start: 20050101, end: 20100101
  2. YASMIN [Suspect]
     Indication: ACNE
     Dosage: UNK
     Dates: start: 20051001, end: 20080701
  3. YASMIN [Suspect]
     Indication: PREMENSTRUAL SYNDROME
  4. MAXAIR [Concomitant]
     Indication: ASTHMA
     Dosage: UNK
     Dates: start: 20050101
  5. LANTUS [Concomitant]
  6. TRICOR [Concomitant]
  7. PROMETHAZINE [Concomitant]
  8. YASMIN [Suspect]
     Indication: CONTRACEPTION
     Dosage: UNK
     Route: 048
     Dates: start: 20050101, end: 20100101
  9. DARVOCET [Concomitant]
     Dosage: UNK
     Route: 048
     Dates: start: 20080312
  10. YAZ [Suspect]
  11. GLUCOPHAGE [Concomitant]
  12. YASMIN [Suspect]
  13. NASONEX [Concomitant]
  14. CLONAZEPAM [Concomitant]
     Dosage: UNK
     Dates: start: 20000101
  15. HYDROCORTONE [Concomitant]
  16. YAZ [Suspect]
     Indication: ACNE
     Dosage: UNK
     Dates: start: 20080721, end: 20090901
  17. YAZ [Suspect]
     Indication: PREMENSTRUAL SYNDROME
  18. ALLEGRA [Concomitant]
  19. OXYCODONE HCL [Concomitant]
  20. CLOTRIM/BETA CREAM [Concomitant]
     Dosage: UNK
     Route: 061
     Dates: start: 20080507
  21. NEXIUM [Concomitant]
     Dosage: UNK
     Dates: start: 20060101
  22. CEPHALEXIN [Concomitant]
     Dosage: 250 MG, UNK
     Route: 048
     Dates: start: 20080312
  23. OXYCODONE HCL AND ACETAMINOPHEN [Concomitant]
     Dosage: UNK
     Route: 048
     Dates: start: 20080424
  24. CITALOPRAM HYDROBROMIDE [Concomitant]
     Dosage: 40 MG, UNK
     Route: 048
     Dates: start: 20080428
  25. PHENAZOPYRIDINE HCL TAB [Concomitant]
     Dosage: 100 MG, UNK
     Route: 048
     Dates: start: 20080512
  26. BACTRIM [Concomitant]
     Dosage: UNK
     Route: 048
     Dates: start: 20080512

REACTIONS (5)
  - CHOLECYSTITIS CHRONIC [None]
  - CHOLECYSTECTOMY [None]
  - INJURY [None]
  - PANCREATITIS [None]
  - ABDOMINAL PAIN UPPER [None]
